FAERS Safety Report 18682872 (Version 1)
Quarter: 2020Q4

REPORT INFORMATION
  Report Type: Spontaneous
  Country: US (occurrence: US)
  Receive Date: 20201230
  Receipt Date: 20201230
  Transmission Date: 20210114
  Serious: Yes (Death)
  Sender: FDA-Public Use
  Company Number: US-AMNEAL PHARMACEUTICALS-2020-AMRX-04049

PATIENT
  Age: 68 Year
  Sex: Male

DRUGS (1)
  1. PREDNISONE. [Suspect]
     Active Substance: PREDNISONE
     Indication: AUTOIMMUNE HAEMOLYTIC ANAEMIA
     Dosage: 1 MG/KG UP TITRATED TILL 65 MG DAILY, UNK
     Route: 065

REACTIONS (3)
  - Gastrointestinal haemorrhage [Fatal]
  - Shock haemorrhagic [Fatal]
  - Gastrointestinal perforation [Fatal]
